FAERS Safety Report 9333476 (Version 2)
Quarter: 2013Q2

REPORT INFORMATION
  Report Type: Spontaneous
  Country: JP (occurrence: JP)
  Receive Date: 20130606
  Receipt Date: 20130626
  Transmission Date: 20140414
  Serious: Yes (Other)
  Sender: FDA-Public Use
  Company Number: JP-PFIZER INC-2013114904

PATIENT
  Age: 63 Year
  Sex: Male
  Weight: 64 kg

DRUGS (7)
  1. CHAMPIX [Suspect]
     Indication: NICOTINE DEPENDENCE
     Dosage: 0.5 MG, 1X/DAY
     Route: 048
     Dates: start: 20120517, end: 20120519
  2. CHAMPIX [Suspect]
     Dosage: 0.5 MG, 2X/DAY
     Route: 048
     Dates: start: 20120520, end: 20120523
  3. CHAMPIX [Suspect]
     Dosage: 1.0 MG, 2X/DAY
     Route: 048
     Dates: start: 20120524, end: 20120613
  4. CHAMPIX [Suspect]
     Dosage: 0.5 MG, 2X/DAY
     Route: 048
     Dates: start: 20120726, end: 20120921
  5. TAKEPRON OD [Concomitant]
     Indication: GASTRITIS
     Dosage: 15 MG, 1X/DAY
     Route: 048
     Dates: start: 20120531, end: 20120613
  6. TAKEPRON OD [Concomitant]
     Dosage: 15 MG, 1X/DAY
     Route: 048
     Dates: start: 20120726
  7. KLARICID [Concomitant]
     Indication: BRONCHITIS CHRONIC
     Dosage: 200 MG, 1X/DAY
     Route: 048
     Dates: start: 20120726

REACTIONS (5)
  - Carcinoid tumour [Not Recovered/Not Resolved]
  - Diplopia [Not Recovered/Not Resolved]
  - Vision blurred [Not Recovered/Not Resolved]
  - Photophobia [Not Recovered/Not Resolved]
  - Nausea [Recovering/Resolving]
